FAERS Safety Report 7504072-7 (Version None)
Quarter: 2011Q2

REPORT INFORMATION
  Report Type: 
  Country: None (occurrence: None)
  Receive Date: 20110401
  Receipt Date: 20110223
  Transmission Date: 20111010
  Serious: Yes (Other)
  Sender: FDA-Public Use
  Company Number: 268864USA

PATIENT
  Age: 69 Year
  Sex: Female

DRUGS (1)
  1. TOPIRAMATE [Suspect]
     Indication: AFFECTIVE DISORDER
     Dosage: (200 MG), ORAL
     Route: 048
     Dates: start: 20101101, end: 20110131

REACTIONS (1)
  - SUICIDAL IDEATION [None]
